FAERS Safety Report 25003489 (Version 2)
Quarter: 2025Q1

REPORT INFORMATION
  Report Type: Spontaneous
  Country: CA (occurrence: None)
  Receive Date: 20250224
  Receipt Date: 20250311
  Transmission Date: 20250408
  Serious: Yes (Hospitalization)
  Sender: ORION
  Company Number: CA-PFIZER INC-202500039825

PATIENT
  Age: 67 Year
  Sex: Female

DRUGS (10)
  1. METHOTREXATE [Suspect]
     Active Substance: METHOTREXATE
     Indication: Granulomatosis with polyangiitis
  2. ACETAMINOPHEN [Concomitant]
     Active Substance: ACETAMINOPHEN
  3. CHOLECALCIFEROL [Concomitant]
     Active Substance: CHOLECALCIFEROL
  4. FOLIC ACID [Concomitant]
     Active Substance: FOLIC ACID
  5. PANTOPRAZOLE [Concomitant]
     Active Substance: PANTOPRAZOLE
  6. PERINDOPRIL [Concomitant]
     Active Substance: PERINDOPRIL
  7. PREDNISONE [Concomitant]
     Active Substance: PREDNISONE
  8. PREGABALIN [Concomitant]
     Active Substance: PREGABALIN
  9. PROGESTERONE [Concomitant]
     Active Substance: PROGESTERONE
  10. SULFAMETHOXAZOLE\TRIMETHOPRIM [Concomitant]
     Active Substance: SULFAMETHOXAZOLE\TRIMETHOPRIM

REACTIONS (4)
  - Drug ineffective for unapproved indication [Unknown]
  - Granulomatosis with polyangiitis [Unknown]
  - Off label use [Unknown]
  - Renal disorder [Unknown]
